FAERS Safety Report 10025056 (Version 1)
Quarter: 2014Q1

REPORT INFORMATION
  Report Type: Spontaneous
  Country: US (occurrence: US)
  Receive Date: 20140320
  Receipt Date: 20140320
  Transmission Date: 20141002
  Serious: No
  Sender: FDA-Public Use
  Company Number: US-009507513-1403USA008800

PATIENT
  Age: 40 Year
  Sex: Male
  Weight: 113.38 kg

DRUGS (1)
  1. NUVARING [Suspect]

REACTIONS (4)
  - Genital discomfort [Unknown]
  - Genital pain [Unknown]
  - Genital burning sensation [Unknown]
  - Pruritus genital [Unknown]
